FAERS Safety Report 17880083 (Version 1)
Quarter: 2020Q2

REPORT INFORMATION
  Report Type: Report from Study
  Country: IL (occurrence: IL)
  Receive Date: 20200610
  Receipt Date: 20200610
  Transmission Date: 20200714
  Serious: Yes (Hospitalization)
  Sender: FDA-Public Use
  Company Number: IL-ACTELION-A-CH2020-205484

PATIENT
  Age: 68 Year
  Sex: Female
  Weight: 102 kg

DRUGS (14)
  1. MACITENTAN [Suspect]
     Active Substance: MACITENTAN
     Indication: CARDIAC FAILURE
     Dosage: 10 MG, OD
     Route: 048
     Dates: start: 20200507, end: 20200516
  2. CARDILOC [Concomitant]
     Active Substance: BISOPROLOL FUMARATE
     Dosage: 1.25 MG, BID
     Dates: start: 20190522
  3. HYDRALAZINE [Concomitant]
     Active Substance: HYDRALAZINE HYDROCHLORIDE
     Dosage: 20 UNK, TID
     Dates: start: 20190831
  4. DIGOXIN. [Concomitant]
     Active Substance: DIGOXIN
     Dosage: 0.125 MG, 4XW
     Dates: start: 20190428
  5. REPAGLINIDE. [Concomitant]
     Active Substance: REPAGLINIDE
     Dosage: 1 MG, OD
     Dates: start: 20190512
  6. FUSID [FUROSEMIDE] [Concomitant]
     Active Substance: FUROSEMIDE
     Dosage: 60 UNK, BID
     Dates: start: 20190522
  7. ALLORIL [Concomitant]
     Active Substance: ALLOPURINOL
     Dosage: 100 MG
     Dates: start: 20090910
  8. LITORVA [Concomitant]
     Active Substance: ATORVASTATIN CALCIUM
     Dosage: 40 MG
     Dates: start: 20180621
  9. SPIRONOLACTONE. [Concomitant]
     Active Substance: SPIRONOLACTONE
     Dosage: 50 MG, OD
     Dates: start: 20190303
  10. COUMADIN [Concomitant]
     Active Substance: WARFARIN SODIUM
     Dosage: UNK
     Dates: start: 20081012
  11. OMEPRADEX [Concomitant]
     Active Substance: OMEPRAZOLE
     Dosage: 20 MG
     Dates: start: 20100921
  12. OXYGEN. [Concomitant]
     Active Substance: OXYGEN
     Dosage: UNK
     Dates: start: 2019
  13. MACITENTAN [Suspect]
     Active Substance: MACITENTAN
     Indication: PULMONARY VASCULAR DISORDER
     Dosage: 10 MG, OD
     Route: 048
     Dates: start: 20200427, end: 20200504
  14. EUTHYROX [Concomitant]
     Active Substance: LEVOTHYROXINE SODIUM
     Dosage: 50 MG
     Dates: start: 20181205

REACTIONS (8)
  - Oliguria [Recovered/Resolved]
  - Bradycardia [Recovered/Resolved]
  - Oedema peripheral [Recovered/Resolved]
  - Renal failure [Recovered/Resolved]
  - Cardiac failure congestive [Recovered/Resolved]
  - Atrioventricular block complete [Recovered/Resolved]
  - Cardiac pacemaker insertion [Unknown]
  - Dyspnoea [Recovered/Resolved]

NARRATIVE: CASE EVENT DATE: 20200518
